FAERS Safety Report 6370116-1 (Version None)
Quarter: 2009Q3

REPORT INFORMATION
  Report Type: 
  Country: None (occurrence: None)
  Receive Date: 20090923
  Receipt Date: 20070906
  Transmission Date: 20100115
  Serious: Yes (Other)
  Sender: FDA-Public Use
  Company Number: US-ASTRAZENECA-2006UW21762

PATIENT
  Age: 50 Year
  Sex: Female
  Weight: 95.3 kg

DRUGS (21)
  1. SEROQUEL [Suspect]
     Indication: ANXIETY
     Dosage: 50, 600 MG
     Route: 048
     Dates: start: 20020522
  2. SEROQUEL [Suspect]
     Indication: BIPOLAR DISORDER
     Dosage: 50, 600 MG
     Route: 048
     Dates: start: 20020522
  3. SEROQUEL [Suspect]
     Indication: DEPRESSION
     Dosage: 50, 600 MG
     Route: 048
     Dates: start: 20020522
  4. SEROQUEL [Suspect]
     Dosage: 200MG, 600MG, 900MG, 1100MG
     Route: 048
     Dates: start: 20020601
  5. SEROQUEL [Suspect]
     Dosage: 200MG, 600MG, 900MG, 1100MG
     Route: 048
     Dates: start: 20020601
  6. SEROQUEL [Suspect]
     Dosage: 200MG, 600MG, 900MG, 1100MG
     Route: 048
     Dates: start: 20020601
  7. LIPITOR [Concomitant]
     Dates: start: 20060517
  8. VALIUM [Concomitant]
     Dates: start: 20060517
  9. ZYRTEC [Concomitant]
     Dates: start: 20060517
  10. TOPAMAX [Concomitant]
     Dosage: 200-600 MG
     Dates: start: 20060517
  11. SYNTHROID [Concomitant]
     Dates: start: 20060517
  12. TRILEPTAL [Concomitant]
     Dosage: 600-900 MG
     Dates: start: 20060516
  13. AVANDIA [Concomitant]
     Dates: start: 20060517
  14. DIOVAN [Concomitant]
     Dates: start: 20060517
  15. CYMBALTA [Concomitant]
     Dates: start: 20060516
  16. COUMADIN [Concomitant]
     Dosage: 7.5 MG MONDAY AND FRIDAY
     Dates: start: 20060517
  17. LORTAB [Concomitant]
     Dosage: ONE TO TWO TABS AS NEEDED EVERY 4 TO 6 HOURS FOR PAIN
     Dates: start: 20060517
  18. DETROL LA [Concomitant]
     Dates: start: 20060517
  19. GLUCOPHAGE [Concomitant]
     Dates: start: 20060517
  20. PAXIL [Concomitant]
     Dates: start: 20020522
  21. DEPAKOTE ER [Concomitant]

REACTIONS (2)
  - DIABETES MELLITUS [None]
  - DIABETES MELLITUS INADEQUATE CONTROL [None]
